FAERS Safety Report 19975345 (Version 2)
Quarter: 2022Q1

REPORT INFORMATION
  Report Type: Spontaneous
  Country: US (occurrence: US)
  Receive Date: 20211020
  Receipt Date: 20220301
  Transmission Date: 20220423
  Serious: No
  Sender: FDA-Public Use
  Company Number: US-PFIZER INC-202101120059

PATIENT
  Age: 41 Year
  Sex: Female

DRUGS (2)
  1. XELJANZ XR [Suspect]
     Active Substance: TOFACITINIB CITRATE
     Indication: Rheumatoid arthritis
     Dosage: 11 MG, 1X/DAY
     Dates: start: 20210823
  2. XELJANZ XR [Suspect]
     Active Substance: TOFACITINIB CITRATE
     Indication: Sarcoidosis
     Dosage: 11 MG, 1X/DAY
     Route: 048
     Dates: start: 20210820

REACTIONS (4)
  - Off label use [Unknown]
  - Therapy non-responder [Unknown]
  - Viral infection [Unknown]
  - Vomiting [Unknown]
